FAERS Safety Report 7588770 (Version 4)
Quarter: 2013Q4

REPORT INFORMATION
  Report Type: Spontaneous
  Country: US (occurrence: US)
  Receive Date: 20100916
  Receipt Date: 20131224
  Transmission Date: 20140711
  Serious: Yes (Other)
  Sender: FDA-Public Use
  Company Number: US-BAYER-201033596NA

PATIENT
  Age: 22 Year
  Sex: Female
  Weight: 70.3 kg

DRUGS (11)
  1. YASMIN [Suspect]
     Indication: PRODUCT USED FOR UNKNOWN INDICATION
     Route: 048
     Dates: start: 200307, end: 20061215
  2. IBUPROFEN [Concomitant]
     Dosage: UNK
     Dates: end: 20050322
  3. CYMBALTA [Concomitant]
  4. NEXIUM [Concomitant]
  5. HYDROCODONE W/IBUPROFEN [Concomitant]
     Dosage: 7.5 MG/200 MG
     Dates: start: 20090216
  6. HALFLYTELY AND BISACODYL BOWEL PREP WITH FLAVOR PACKS [Concomitant]
     Dosage: UNK
     Dates: start: 20090516
  7. BUPROPION [Concomitant]
     Dosage: 100 MG, UNK
  8. WELLBUTRIN [Concomitant]
  9. APRI [Concomitant]
  10. CYMBALTA [Concomitant]
  11. NEXIUM [Concomitant]

REACTIONS (3)
  - Gallbladder disorder [None]
  - Biliary dyskinesia [None]
  - Cholecystitis chronic [None]
